FAERS Safety Report 8581792-7 (Version None)
Quarter: 2012Q3

REPORT INFORMATION
  Report Type: 
  Country: None (occurrence: None)
  Receive Date: 20120809
  Receipt Date: 20120807
  Transmission Date: 20120928
  Serious: Yes (Other)
  Sender: FDA-Public Use
  Company Number: PHEH2012US014120

PATIENT
  Sex: Female

DRUGS (7)
  1. XANAX [Concomitant]
     Dosage: 0.25 MG, PRN
  2. LYRICA [Concomitant]
     Dosage: 75 MG, QD
  3. TOPAMAX [Concomitant]
     Dosage: 1.5 DF, BID
  4. FIORINAL [Concomitant]
     Dosage: PRN
  5. GILENYA [Suspect]
     Indication: MULTIPLE SCLEROSIS
     Dosage: 0.5 MG, QD
     Route: 048
     Dates: start: 20120619, end: 20120625
  6. PROMETHAZINE [Concomitant]
     Dosage: 25 MG, PRN
  7. LEXAPRO [Concomitant]
     Dosage: 10 MG, QD

REACTIONS (2)
  - PHARYNGEAL OEDEMA [None]
  - RASH [None]
